FAERS Safety Report 13665903 (Version 2)
Quarter: 2017Q3

REPORT INFORMATION
  Report Type: Report from Study
  Country: US (occurrence: BR)
  Receive Date: 20170619
  Receipt Date: 20170829
  Transmission Date: 20171127
  Serious: Yes (Death, Other)
  Sender: FDA-Public Use
  Company Number: US-SUNOVION-2017SUN002543

PATIENT
  Age: 90 Year
  Sex: Female

DRUGS (2)
  1. GLYCOPYRROLATE. [Suspect]
     Active Substance: GLYCOPYRROLATE
     Indication: DYSPNOEA
     Dosage: IN MAR OR APR 2015
     Route: 065
     Dates: start: 2015, end: 2016
  2. FORASEQ [Concomitant]
     Active Substance: BUDESONIDE\FORMOTEROL FUMARATE

REACTIONS (7)
  - Chronic obstructive pulmonary disease [Fatal]
  - Asthenia [Fatal]
  - Cardiac failure [Fatal]
  - Neoplasm malignant [Fatal]
  - Product use in unapproved indication [Unknown]
  - Oesophageal carcinoma [Fatal]
  - Tracheal obstruction [Unknown]

NARRATIVE: CASE EVENT DATE: 201608
